FAERS Safety Report 16839675 (Version 3)
Quarter: 2021Q3

REPORT INFORMATION
  Report Type: Spontaneous
  Country: US (occurrence: US)
  Receive Date: 20190923
  Receipt Date: 20210909
  Transmission Date: 20211014
  Serious: Yes (Other)
  Sender: FDA-Public Use
  Company Number: US-GILEAD-2019-0429306

PATIENT
  Age: 55 Year
  Sex: Female
  Weight: 158.73 kg

DRUGS (53)
  1. ODEFSEY [Concomitant]
     Active Substance: EMTRICITABINE\RILPIVIRINE HYDROCHLORIDE\TENOFOVIR ALAFENAMIDE FUMARATE
  2. GUAIFENESIN. [Concomitant]
     Active Substance: GUAIFENESIN
  3. METHYLPREDNISOLONE. [Concomitant]
     Active Substance: METHYLPREDNISOLONE
  4. PREDNISONE. [Concomitant]
     Active Substance: PREDNISONE
  5. SULFAMETH/TRIMETH [Concomitant]
     Active Substance: SULFAMETHOXAZOLE\TRIMETHOPRIM
  6. VITAMIN D [VITAMIN D NOS] [Concomitant]
     Active Substance: VITAMIN D NOS
  7. DULCOLAX BALANCE [Concomitant]
     Active Substance: POLYETHYLENE GLYCOL 3350
  8. SEVELAMER CARBONATE AL [Concomitant]
  9. FLUCONAZOLE. [Concomitant]
     Active Substance: FLUCONAZOLE
  10. LEVOFLOXACIN. [Concomitant]
     Active Substance: LEVOFLOXACIN
  11. RANITIDINE. [Concomitant]
     Active Substance: RANITIDINE
  12. TRAMADOL. [Concomitant]
     Active Substance: TRAMADOL
  13. ZOFRAN [Concomitant]
     Active Substance: ONDANSETRON HYDROCHLORIDE
  14. LIQUACEL [Concomitant]
  15. ATRIPLA [Suspect]
     Active Substance: EFAVIRENZ\EMTRICITABINE\TENOFOVIR DISOPROXIL FUMARATE
     Indication: HIV INFECTION
     Dosage: UNK
     Route: 048
     Dates: start: 20090723, end: 20171018
  16. CARVEDILOL. [Concomitant]
     Active Substance: CARVEDILOL
  17. CYCLOSPORINE. [Concomitant]
     Active Substance: CYCLOSPORINE
  18. FUROSEMIDE. [Concomitant]
     Active Substance: FUROSEMIDE
  19. LORATADINE. [Concomitant]
     Active Substance: LORATADINE
  20. MELOXICAM. [Concomitant]
     Active Substance: MELOXICAM
  21. TRAZODONE [Concomitant]
     Active Substance: TRAZODONE HYDROCHLORIDE
  22. DULOXETINE. [Concomitant]
     Active Substance: DULOXETINE
  23. GABAPENTIN. [Concomitant]
     Active Substance: GABAPENTIN
  24. HYDROXYZINE HCL [Concomitant]
     Active Substance: HYDROXYZINE HYDROCHLORIDE
  25. OXYCODONE AND ACETAMINOPHEN [Concomitant]
     Active Substance: ACETAMINOPHEN\OXYCODONE HYDROCHLORIDE
  26. AMOXICILLIN AND CLAVULA. POTASSIUM [AMOXICILLIN;CLAVULANATE POTASSIUM] [Concomitant]
     Active Substance: AMOXICILLIN\CLAVULANATE POTASSIUM
  27. ATORVASTATIN [Concomitant]
     Active Substance: ATORVASTATIN
  28. IBUPROFEN. [Concomitant]
     Active Substance: IBUPROFEN
  29. TIZANIDINE. [Concomitant]
     Active Substance: TIZANIDINE
  30. ALLOPURINOL. [Concomitant]
     Active Substance: ALLOPURINOL
  31. AMLODIPINE BENAZEPRIL [Concomitant]
     Active Substance: AMLODIPINE BESYLATE\BENAZEPRIL HYDROCHLORIDE
  32. BUMETANIDE. [Concomitant]
     Active Substance: BUMETANIDE
  33. AZITHROMYCIN ANHYDROUS. [Concomitant]
     Active Substance: AZITHROMYCIN ANHYDROUS
  34. HYDROCHLOROTHIAZIDE. [Concomitant]
     Active Substance: HYDROCHLOROTHIAZIDE
  35. LISINOPRIL. [Concomitant]
     Active Substance: LISINOPRIL
  36. LOPRESSOR [Concomitant]
     Active Substance: METOPROLOL TARTRATE
  37. METHOCARBAMOL. [Concomitant]
     Active Substance: METHOCARBAMOL
  38. SERTRALINE [Concomitant]
     Active Substance: SERTRALINE HYDROCHLORIDE
  39. WARFARIN [Concomitant]
     Active Substance: WARFARIN
  40. IRON [Concomitant]
     Active Substance: IRON
  41. CLONIDINE. [Concomitant]
     Active Substance: CLONIDINE
  42. ACETAMINOPHEN;HYDROCODONE [Concomitant]
     Active Substance: ACETAMINOPHEN\HYDROCODONE
  43. NIFEDIPINE. [Concomitant]
     Active Substance: NIFEDIPINE
  44. NORTRIPTYLINE [Concomitant]
     Active Substance: NORTRIPTYLINE
  45. TEMAZEPAM. [Concomitant]
     Active Substance: TEMAZEPAM
  46. TERBINAFINE. [Concomitant]
     Active Substance: TERBINAFINE
  47. BENADRYL ALLERGY [Concomitant]
     Active Substance: DIPHENHYDRAMINE HYDROCHLORIDE
  48. AVELOX [Concomitant]
     Active Substance: MOXIFLOXACIN HYDROCHLORIDE
  49. CYCLOBENZAPRINE. [Concomitant]
     Active Substance: CYCLOBENZAPRINE
  50. NAPROXEN. [Concomitant]
     Active Substance: NAPROXEN
  51. ZOLPIDEM [Concomitant]
     Active Substance: ZOLPIDEM TARTRATE
  52. LOSARTAN. [Concomitant]
     Active Substance: LOSARTAN
  53. SIMVASTATIN. [Concomitant]
     Active Substance: SIMVASTATIN

REACTIONS (12)
  - Mobility decreased [Not Recovered/Not Resolved]
  - Emotional distress [Not Recovered/Not Resolved]
  - Anxiety [Not Recovered/Not Resolved]
  - End stage renal disease [Unknown]
  - Anhedonia [Not Recovered/Not Resolved]
  - Chronic kidney disease [Unknown]
  - Quality of life decreased [Not Recovered/Not Resolved]
  - Economic problem [Not Recovered/Not Resolved]
  - Pain [Not Recovered/Not Resolved]
  - Renal failure [Not Recovered/Not Resolved]
  - Fatigue [Unknown]
  - Anaemia [Not Recovered/Not Resolved]

NARRATIVE: CASE EVENT DATE: 20180302
